FAERS Safety Report 16470200 (Version 2)
Quarter: 2019Q3

REPORT INFORMATION
  Report Type: Spontaneous
  Country: GB (occurrence: GB)
  Receive Date: 20190624
  Receipt Date: 20190920
  Transmission Date: 20191004
  Serious: Yes (Hospitalization, Other)
  Sender: FDA-Public Use
  Company Number: GB-JNJFOC-20190618595

PATIENT
  Age: 70 Year
  Weight: 78 kg

DRUGS (3)
  1. RIVAROXABAN [Suspect]
     Active Substance: RIVAROXABAN
     Indication: THROMBOSIS PROPHYLAXIS
     Route: 048
     Dates: start: 20190517
  2. RIVAROXABAN [Suspect]
     Active Substance: RIVAROXABAN
     Indication: THROMBOSIS PROPHYLAXIS
  3. APIXABAN [Concomitant]
     Active Substance: APIXABAN
     Route: 048

REACTIONS (3)
  - Deep vein thrombosis postoperative [Unknown]
  - Pulmonary embolism [Recovered/Resolved]
  - Suspected counterfeit product [Unknown]
